FAERS Safety Report 8450183-1 (Version None)
Quarter: 2012Q2

REPORT INFORMATION
  Report Type: 
  Country: None (occurrence: None)
  Receive Date: 20120614
  Receipt Date: 20120614
  Transmission Date: 20120825
  Serious: Yes (Other)
  Sender: FDA-Public Use
  Company Number: None

PATIENT
  Sex: Female

DRUGS (3)
  1. FLUOCINILONE ACETONIDE [Suspect]
     Indication: PRURITUS
     Dosage: 15 MG TWICE A DAY TOP
     Route: 061
     Dates: start: 20120612
  2. FLUOCINILONE ACETONIDE [Suspect]
     Indication: BURNING SENSATION
     Dosage: 15 MG TWICE A DAY TOP
     Route: 061
     Dates: start: 20120612
  3. LEVOTHYROXONE 75 MG ONE A DAY [Concomitant]

REACTIONS (3)
  - PRURITUS [None]
  - BURNING SENSATION [None]
  - CONDITION AGGRAVATED [None]
